FAERS Safety Report 19132100 (Version 1)
Quarter: 2021Q2

REPORT INFORMATION
  Report Type: Spontaneous
  Country: GB (occurrence: GB)
  Receive Date: 20210413
  Receipt Date: 20210413
  Transmission Date: 20210717
  Serious: Yes (Other)
  Sender: FDA-Public Use
  Company Number: GB-TEVA-2021-GB-1897956

PATIENT
  Age: 51 Year
  Sex: Female

DRUGS (1)
  1. OMEPRAZOLE. [Suspect]
     Active Substance: OMEPRAZOLE
     Indication: GASTROOESOPHAGEAL REFLUX DISEASE
     Dates: start: 2019

REACTIONS (10)
  - Myalgia [Recovered/Resolved]
  - Pain in extremity [Unknown]
  - Rhinorrhoea [Recovered/Resolved]
  - Abdominal distension [Not Recovered/Not Resolved]
  - Chills [Recovered/Resolved]
  - Pain [Unknown]
  - Abdominal discomfort [Not Recovered/Not Resolved]
  - Tremor [Recovered/Resolved]
  - Sneezing [Recovered/Resolved]
  - Abdominal distension [Unknown]

NARRATIVE: CASE EVENT DATE: 20210307
